FAERS Safety Report 17318294 (Version 1)
Quarter: 2020Q1

REPORT INFORMATION
  Report Type: Spontaneous
  Country: FR (occurrence: FR)
  Receive Date: 20200124
  Receipt Date: 20200124
  Transmission Date: 20200409
  Serious: Yes (Death, Other)
  Sender: FDA-Public Use
  Company Number: FR-MYLANLABS-2020M1007469

PATIENT
  Age: 60 Year
  Sex: Male

DRUGS (4)
  1. XYLOCAINE [Interacting]
     Active Substance: LIDOCAINE HYDROCHLORIDE
     Indication: ARRHYTHMIA
     Dosage: 90 MILLIGRAM
     Route: 040
  2. CORDARONE X [Concomitant]
     Active Substance: AMIODARONE HYDROCHLORIDE
     Indication: TACHYCARDIA
     Dosage: 300 MG
     Route: 065
  3. BISOPROLOL [Suspect]
     Active Substance: BISOPROLOL
     Indication: CARDIAC DISORDER
     Dosage: UNK
     Route: 065
  4. XYLOCAINE [Interacting]
     Active Substance: LIDOCAINE HYDROCHLORIDE
     Indication: TACHYCARDIA
     Dosage: UNK

REACTIONS (4)
  - Labelled drug-drug interaction medication error [Unknown]
  - Cardiac arrest [Fatal]
  - Heart rate decreased [Unknown]
  - Epilepsy [Unknown]
